FAERS Safety Report 23230680 (Version 2)
Quarter: 2023Q4

REPORT INFORMATION
  Report Type: Report from Study
  Country: US (occurrence: US)
  Receive Date: 20231127
  Receipt Date: 20231220
  Transmission Date: 20240110
  Serious: No
  Sender: FDA-Public Use
  Company Number: US-AGIOS-2311US03549

PATIENT
  Sex: Female

DRUGS (13)
  1. MITAPIVAT [Suspect]
     Active Substance: MITAPIVAT
     Indication: Pyruvate kinase deficiency anaemia
     Dosage: 5 MILLIGRAM, BID
     Route: 065
     Dates: start: 20231027
  2. MITAPIVAT [Suspect]
     Active Substance: MITAPIVAT
     Dosage: 50 MILLIGRAM
     Route: 048
  3. FOLIC ACID [Concomitant]
     Active Substance: FOLIC ACID
     Indication: Product used for unknown indication
  4. PREVACID [Concomitant]
     Active Substance: LANSOPRAZOLE
     Indication: Product used for unknown indication
  5. METOPROLOL [Concomitant]
     Active Substance: METOPROLOL
     Indication: Product used for unknown indication
  6. ASPIRIN [Concomitant]
     Active Substance: ASPIRIN
     Indication: Product used for unknown indication
  7. LIPITOR [Concomitant]
     Active Substance: ATORVASTATIN CALCIUM
     Indication: Product used for unknown indication
  8. HYDROCHLOROTHIAZIDE [Concomitant]
     Active Substance: HYDROCHLOROTHIAZIDE
     Indication: Product used for unknown indication
  9. PREDNISOLONE [Concomitant]
     Active Substance: PREDNISOLONE
     Dosage: EYE DROPS
  10. VITAMINS [Concomitant]
     Active Substance: VITAMINS
  11. VITAMIN A-E [Concomitant]
     Indication: Product used for unknown indication
  12. OCUVITE [Concomitant]
     Active Substance: VITAMINS
     Indication: Product used for unknown indication
  13. FISH OIL [Concomitant]
     Active Substance: FISH OIL

REACTIONS (2)
  - Haemoglobin decreased [Unknown]
  - Dyspnoea [Recovered/Resolved]
